FAERS Safety Report 6940958-X (Version None)
Quarter: 2010Q3

REPORT INFORMATION
  Report Type: 
  Country: None (occurrence: None)
  Receive Date: 20100825
  Receipt Date: 20100817
  Transmission Date: 20110219
  Serious: Yes (Death, Life-Threatening, Hospitalization)
  Sender: FDA-Public Use
  Company Number: A0866575A

PATIENT
  Age: 70 Year
  Sex: Female

DRUGS (1)
  1. VENTOLIN [Suspect]
     Dosage: 2PUFF TWICE PER DAY
     Route: 055
     Dates: start: 20100611

REACTIONS (2)
  - COLLAPSE OF LUNG [None]
  - ONCOLOGIC COMPLICATION [None]
